FAERS Safety Report 9274764 (Version 1)
Quarter: 2013Q2

REPORT INFORMATION
  Report Type: Spontaneous
  Country: US (occurrence: None)
  Receive Date: 20130429
  Receipt Date: 20130429
  Transmission Date: 20140414
  Serious: Yes (Hospitalization)
  Sender: FDA-Public Use
  Company Number: FK201301298

PATIENT
  Age: 52 Year
  Sex: Male

DRUGS (4)
  1. CLONIDINE [Suspect]
     Indication: HYPERTENSION
  2. HYDRALAZINE [Suspect]
     Indication: HYPERTENSION
  3. LACTULOSE [Suspect]
     Indication: HYPERTENSION
  4. LAXATIVES [Suspect]
     Indication: HYPERTENSION

REACTIONS (5)
  - Gastrointestinal tract mucosal pigmentation [None]
  - Gastrointestinal tract mucosal pigmentation [None]
  - Gastric disorder [None]
  - Pseudomonas infection [None]
  - Ileus [None]
